FAERS Safety Report 4831598-7 (Version None)
Quarter: 2005Q4

REPORT INFORMATION
  Report Type: 
  Country: None (occurrence: None)
  Receive Date: 20051116
  Receipt Date: 20051104
  Transmission Date: 20060501
  Serious: Yes (Disabling, Other)
  Sender: FDA-Public Use
  Company Number: 2005151675

PATIENT
  Age: 48 Year
  Sex: Male
  Weight: 90.7194 kg

DRUGS (4)
  1. LIPITOR [Suspect]
     Indication: BLOOD CHOLESTEROL INCREASED
     Dosage: 40 MG (40 MG 1 IN 1 D) ORAL
     Route: 048
  2. GLUCOTROL XL [Concomitant]
     Indication: DIABETES MELLITUS
  3. ZYRTEC [Suspect]
     Indication: MULTIPLE ALLERGIES
  4. INSULIN [Concomitant]

REACTIONS (2)
  - COLON CANCER METASTATIC [None]
  - MEMORY IMPAIRMENT [None]
